FAERS Safety Report 25675456 (Version 1)
Quarter: 2025Q3

REPORT INFORMATION
  Report Type: Spontaneous
  Country: NZ (occurrence: NZ)
  Receive Date: 20250813
  Receipt Date: 20250813
  Transmission Date: 20251021
  Serious: Yes (Other)
  Sender: MYLAN
  Company Number: NZ-MYLANLABS-2025M1067802

PATIENT
  Sex: Male
  Weight: 108 kg

DRUGS (16)
  1. VECURONIUM BROMIDE [Suspect]
     Active Substance: VECURONIUM BROMIDE
     Indication: Product used for unknown indication
  2. VECURONIUM BROMIDE [Suspect]
     Active Substance: VECURONIUM BROMIDE
     Route: 065
  3. VECURONIUM BROMIDE [Suspect]
     Active Substance: VECURONIUM BROMIDE
     Route: 065
  4. VECURONIUM BROMIDE [Suspect]
     Active Substance: VECURONIUM BROMIDE
  5. PROPOFOL [Concomitant]
     Active Substance: PROPOFOL
  6. PROPOFOL [Concomitant]
     Active Substance: PROPOFOL
     Route: 065
  7. PROPOFOL [Concomitant]
     Active Substance: PROPOFOL
     Route: 065
  8. PROPOFOL [Concomitant]
     Active Substance: PROPOFOL
  9. REMIFENTANIL [Concomitant]
     Active Substance: REMIFENTANIL
  10. REMIFENTANIL [Concomitant]
     Active Substance: REMIFENTANIL
     Route: 065
  11. REMIFENTANIL [Concomitant]
     Active Substance: REMIFENTANIL
     Route: 065
  12. REMIFENTANIL [Concomitant]
     Active Substance: REMIFENTANIL
  13. METARAMINOL [Concomitant]
     Active Substance: METARAMINOL
  14. METARAMINOL [Concomitant]
     Active Substance: METARAMINOL
     Route: 065
  15. METARAMINOL [Concomitant]
     Active Substance: METARAMINOL
     Route: 065
  16. METARAMINOL [Concomitant]
     Active Substance: METARAMINOL

REACTIONS (1)
  - Therapeutic product effect delayed [Unknown]
